FAERS Safety Report 16061329 (Version 2)
Quarter: 2020Q2

REPORT INFORMATION
  Report Type: Spontaneous
  Country: US (occurrence: US)
  Receive Date: 20190312
  Receipt Date: 20200428
  Transmission Date: 20200713
  Serious: Yes (Other)
  Sender: FDA-Public Use
  Company Number: US-ROCHE-2197278

PATIENT
  Age: 42 Week
  Sex: Female
  Weight: .99 kg

DRUGS (1)
  1. BEVACIZUMAB. [Suspect]
     Active Substance: BEVACIZUMAB
     Indication: RETINOPATHY OF PREMATURITY
     Dosage: RIGHT EYE
     Route: 050

REACTIONS (3)
  - Off label use [Unknown]
  - Tractional retinal detachment [Unknown]
  - Intentional product use issue [Unknown]
